FAERS Safety Report 17098935 (Version 1)
Quarter: 2019Q4

REPORT INFORMATION
  Report Type: Spontaneous
  Country: US (occurrence: US)
  Receive Date: 20191130
  Receipt Date: 20191130
  Transmission Date: 20200122
  Serious: Yes (Hospitalization)
  Sender: FDA-Public Use
  Company Number: None

PATIENT
  Age: 61 Year
  Sex: Female

DRUGS (1)
  1. BOTOX [Suspect]
     Active Substance: ONABOTULINUMTOXINA
     Indication: TORTICOLLIS
     Dosage: ?          OTHER FREQUENCY:EVERY 3 MONTHS;OTHER ROUTE:ADMINISTERED IN PRESCRIBERS OFFICE?
     Dates: start: 20190426

REACTIONS (3)
  - Product dose omission [None]
  - Unevaluable event [None]
  - Condition aggravated [None]

NARRATIVE: CASE EVENT DATE: 20191122
